FAERS Safety Report 24761222 (Version 1)
Quarter: 2024Q4

REPORT INFORMATION
  Report Type: Spontaneous
  Country: FR (occurrence: FR)
  Receive Date: 20241220
  Receipt Date: 20241220
  Transmission Date: 20250115
  Serious: Yes (Other)
  Sender: MERCK
  Company Number: None

PATIENT
  Age: 38 Year
  Sex: Female
  Weight: 46 kg

DRUGS (1)
  1. KEYTRUDA [Suspect]
     Active Substance: PEMBROLIZUMAB
     Indication: Breast cancer
     Dosage: 200 MILLIGRAM, Q3W
     Route: 042
     Dates: start: 20231228

REACTIONS (3)
  - Pericardial effusion [Not Recovered/Not Resolved]
  - Hypothyroidism [Recovered/Resolved]
  - Adrenal insufficiency [Not Recovered/Not Resolved]

NARRATIVE: CASE EVENT DATE: 20240322
